FAERS Safety Report 25317792 (Version 3)
Quarter: 2025Q2

REPORT INFORMATION
  Report Type: Spontaneous
  Country: PL (occurrence: PL)
  Receive Date: 20250515
  Receipt Date: 20250530
  Transmission Date: 20250717
  Serious: Yes (Other)
  Sender: CELLTRION
  Company Number: PL-ROCHE-10000118947

PATIENT

DRUGS (11)
  1. BEVACIZUMAB [Suspect]
     Active Substance: BEVACIZUMAB
     Indication: Hepatocellular carcinoma
     Route: 042
     Dates: start: 20240813
  2. ATEZOLIZUMAB [Suspect]
     Active Substance: ATEZOLIZUMAB
     Indication: Hepatocellular carcinoma
     Route: 042
     Dates: start: 20240813
  3. TIRAGOLUMAB [Suspect]
     Active Substance: TIRAGOLUMAB
     Indication: Hepatocellular carcinoma
     Route: 042
     Dates: start: 20240813
  4. ROSUVASTATIN [Concomitant]
     Active Substance: ROSUVASTATIN
     Indication: Hypercholesterolaemia
     Route: 048
     Dates: start: 202103
  5. ASPIRIN [Concomitant]
     Active Substance: ASPIRIN
     Indication: Leriche syndrome
     Route: 048
     Dates: start: 202103
  6. ACETAMINOPHEN\CODEINE PHOSPHATE [Concomitant]
     Active Substance: ACETAMINOPHEN\CODEINE PHOSPHATE
     Route: 048
     Dates: start: 20240917, end: 20240917
  7. TACE [CHLOROTRIANISENE] [Concomitant]
     Indication: Neoplasm malignant
     Dates: start: 20230710
  8. TACE [CHLOROTRIANISENE] [Concomitant]
     Dates: start: 20230718
  9. TACE [CHLOROTRIANISENE] [Concomitant]
     Dates: start: 20240122
  10. TACE [CHLOROTRIANISENE] [Concomitant]
     Dates: start: 20240301
  11. TACE [CHLOROTRIANISENE] [Concomitant]

REACTIONS (2)
  - Hyperthyroidism [Recovering/Resolving]
  - Intentional product use issue [Unknown]

NARRATIVE: CASE EVENT DATE: 20240924
